FAERS Safety Report 10344975 (Version 2)
Quarter: 2014Q3

REPORT INFORMATION
  Report Type: Spontaneous
  Country: US (occurrence: US)
  Receive Date: 20140728
  Receipt Date: 20140801
  Transmission Date: 20150326
  Serious: No
  Sender: FDA-Public Use
  Company Number: US-PFIZER INC-2014209665

PATIENT
  Age: 39 Year
  Sex: Female
  Weight: 107.03 kg

DRUGS (1)
  1. EFFEXOR XR [Suspect]
     Active Substance: VENLAFAXINE HYDROCHLORIDE
     Indication: ANXIETY
     Dosage: 75 MG, UNK
     Route: 048
     Dates: start: 2000

REACTIONS (5)
  - Feeling abnormal [Unknown]
  - Head titubation [Unknown]
  - Gait disturbance [Unknown]
  - Drug withdrawal syndrome [Unknown]
  - Malaise [Unknown]
